FAERS Safety Report 7464072-2 (Version None)
Quarter: 2011Q2

REPORT INFORMATION
  Report Type: 
  Country: None (occurrence: None)
  Receive Date: 20110506
  Receipt Date: 20110427
  Transmission Date: 20111010
  Serious: Yes (Death, Hospitalization)
  Sender: FDA-Public Use
  Company Number: PHHO2011US07512

PATIENT
  Sex: Female
  Weight: 46.9 kg

DRUGS (2)
  1. LBH589 [Suspect]
     Indication: MULTIPLE MYELOMA
     Dosage: 40 MG, MWF
     Route: 048
     Dates: start: 20110413, end: 20110419
  2. AFINITOR [Suspect]
     Indication: MULTIPLE MYELOMA
     Dosage: 5 MG, UNK
     Route: 048
     Dates: start: 20110413, end: 20110419

REACTIONS (2)
  - MULTI-ORGAN FAILURE [None]
  - PNEUMONIA [None]
